FAERS Safety Report 4715912-9 (Version None)
Quarter: 2005Q3

REPORT INFORMATION
  Report Type: 
  Country: None (occurrence: None)
  Receive Date: 20050718
  Receipt Date: 20050711
  Transmission Date: 20060218
  Serious: Yes (Other)
  Sender: FDA-Public Use
  Company Number: 200515697US

PATIENT
  Sex: Male
  Weight: 61 kg

DRUGS (7)
  1. LANTUS [Suspect]
     Indication: DIABETES MELLITUS INSULIN-DEPENDENT
     Dosage: DOSE: 30 U AM, 4 U 12 HOURS LATER
     Dates: start: 20030101
  2. OPTICLIK (INSULIN INJECTION PEN) [Suspect]
     Dosage: DOSE: NOT PROVIDED
     Dates: start: 20050101
  3. TEGRETOL [Concomitant]
     Dosage: DOSE: NOT PROVIDED
  4. LISINOPRIL [Concomitant]
     Dosage: DOSE: NOT PROVIDED
  5. ZOCOR [Concomitant]
     Dosage: DOSE: NOT PROVIDED
  6. ZETIA                                   /USA/ [Concomitant]
     Dosage: DOSE: NOT PROVIDED
  7. NOVOLOG [Concomitant]
     Dosage: DOSE: WITH FOOD

REACTIONS (6)
  - BLOOD GLUCOSE INCREASED [None]
  - BLOOD KETONE BODY [None]
  - DIABETIC KETOACIDOSIS [None]
  - DRUG EFFECT DECREASED [None]
  - INAPPROPRIATE SCHEDULE OF DRUG ADMINISTRATION [None]
  - VOMITING [None]
